FAERS Safety Report 5243757-2 (Version None)
Quarter: 2007Q1

REPORT INFORMATION
  Report Type: 
  Country: None (occurrence: None)
  Receive Date: 20070213
  Receipt Date: 20070130
  Transmission Date: 20070707
  Serious: Yes (Disabling)
  Sender: FDA-Public Use
  Company Number: 070130-0000152

PATIENT
  Age: 40 Year
  Sex: Female
  Weight: 63.5036 kg

DRUGS (5)
  1. PANHEMATIN [Suspect]
     Indication: PORPHYRIA
     Dosage: 1X IV
     Route: 042
     Dates: start: 20070101, end: 20070101
  2. TPN [Concomitant]
  3. OXYCONTIN [Concomitant]
  4. DILAUDID [Concomitant]
  5. FENTANYL TRANSDERMAL SYSTEM [Concomitant]

REACTIONS (10)
  - CONDITION AGGRAVATED [None]
  - DRUG ADMINISTRATION ERROR [None]
  - HYPERAESTHESIA [None]
  - MOVEMENT DISORDER [None]
  - NEUROPATHY PERIPHERAL [None]
  - PHLEBITIS [None]
  - PORPHYRIA [None]
  - SENSORY LOSS [None]
  - VEIN DISORDER [None]
  - WRONG TECHNIQUE IN DRUG USAGE PROCESS [None]
